FAERS Safety Report 14280598 (Version 1)
Quarter: 2017Q4

REPORT INFORMATION
  Report Type: Spontaneous
  Country: US (occurrence: None)
  Receive Date: 20171212
  Receipt Date: 20171212
  Transmission Date: 20180321
  Serious: Yes (Death)
  Sender: FDA-Public Use
  Company Number: None

PATIENT
  Age: 64 Year
  Sex: Male

DRUGS (1)
  1. STELARA [Suspect]
     Active Substance: USTEKINUMAB
     Indication: PSORIASIS
     Dosage: 0.5ML EVERY 3 MONTHS SUBCUT
     Route: 058
     Dates: start: 20161003, end: 201712

REACTIONS (1)
  - Death [None]

NARRATIVE: CASE EVENT DATE: 201712
